FAERS Safety Report 13775199 (Version 1)
Quarter: 2017Q3

REPORT INFORMATION
  Report Type: Spontaneous
  Country: GR (occurrence: GR)
  Receive Date: 20170720
  Receipt Date: 20170720
  Transmission Date: 20171127
  Serious: Yes (Hospitalization)
  Sender: FDA-Public Use
  Company Number: PHHY2017GR104929

PATIENT
  Age: 33 Year
  Sex: Female

DRUGS (1)
  1. COSENTYX [Suspect]
     Active Substance: SECUKINUMAB
     Indication: PRODUCT USED FOR UNKNOWN INDICATION
     Route: 065

REACTIONS (8)
  - Flushing [Unknown]
  - Blood pressure increased [Unknown]
  - Dysstasia [Unknown]
  - Hashimoto^s encephalopathy [Unknown]
  - Muscle spasms [Unknown]
  - Tremor [Unknown]
  - Anxiety [Unknown]
  - Drug ineffective [Unknown]
